FAERS Safety Report 20422965 (Version 1)
Quarter: 2022Q1

REPORT INFORMATION
  Report Type: Spontaneous
  Country: US (occurrence: US)
  Receive Date: 20220203
  Receipt Date: 20220203
  Transmission Date: 20220424
  Serious: Yes (Other)
  Sender: FDA-Public Use
  Company Number: US-009507513-2201USA008298

PATIENT
  Sex: Female

DRUGS (1)
  1. KEYTRUDA [Suspect]
     Active Substance: PEMBROLIZUMAB

REACTIONS (7)
  - Nephrectomy [Unknown]
  - Rash [Unknown]
  - Stomatitis [Unknown]
  - Pain [Unknown]
  - Joint swelling [Unknown]
  - Urine output decreased [Unknown]
  - Headache [Unknown]
